FAERS Safety Report 13336758 (Version 3)
Quarter: 2017Q1

REPORT INFORMATION
  Report Type: Report from Study
  Country: US (occurrence: US)
  Receive Date: 20170314
  Receipt Date: 20170323
  Transmission Date: 20170428
  Serious: Yes (Other)
  Sender: FDA-Public Use
  Company Number: US-JAZZ-2017-US-000175

PATIENT
  Sex: Female

DRUGS (41)
  1. TOPROL XL [Concomitant]
     Active Substance: METOPROLOL SUCCINATE
  2. B COMPLEX                          /00322001/ [Concomitant]
     Active Substance: CALCIUM PANTOTHENATE\CYANOCOBALAMIN\NIACINAMIDE\PYRIDOXINE HYDROCHLORIDE\RIBOFLAVIN\THIAMINE HYDROCHLORIDE
  3. FOCALIN [Concomitant]
     Active Substance: DEXMETHYLPHENIDATE HYDROCHLORIDE
  4. POTASSIUM CHLORIDE. [Concomitant]
     Active Substance: POTASSIUM CHLORIDE
  5. XANAX [Concomitant]
     Active Substance: ALPRAZOLAM
  6. PROAIR HFA [Concomitant]
     Active Substance: ALBUTEROL SULFATE
  7. VITAMIN D3 [Concomitant]
     Active Substance: CHOLECALCIFEROL
  8. SEROQUEL [Concomitant]
     Active Substance: QUETIAPINE FUMARATE
  9. ESTRADIOL. [Concomitant]
     Active Substance: ESTRADIOL
  10. CYMBALTA [Concomitant]
     Active Substance: DULOXETINE HYDROCHLORIDE
  11. DEPLIN [Concomitant]
     Active Substance: LEVOMEFOLATE CALCIUM
  12. KLONOPIN [Concomitant]
     Active Substance: CLONAZEPAM
  13. PROTONIX                           /00661201/ [Concomitant]
     Active Substance: OMEPRAZOLE
  14. DESYREL [Concomitant]
     Active Substance: TRAZODONE HYDROCHLORIDE
  15. SUDAFED PE CONGESTION [Concomitant]
     Active Substance: PHENYLEPHRINE HYDROCHLORIDE
  16. TRIAMTERENE AND HYDROCHLOROTHIAZID [Concomitant]
     Active Substance: HYDROCHLOROTHIAZIDE\TRIAMTERENE
  17. XYZAL [Concomitant]
     Active Substance: LEVOCETIRIZINE DIHYDROCHLORIDE
  18. ZITHROMAX [Concomitant]
     Active Substance: AZITHROMYCIN DIHYDRATE
  19. XYREM [Suspect]
     Active Substance: SODIUM OXYBATE
     Dosage: 3.75 G, BID
     Route: 048
     Dates: start: 200511
  20. MECLIZINE [Concomitant]
     Active Substance: MECLIZINE HYDROCHLORIDE
  21. PROMETHAZINE [Concomitant]
     Active Substance: PROMETHAZINE\PROMETHAZINE HYDROCHLORIDE
  22. CORICIDIN HBP COLD AND FLU [Concomitant]
     Active Substance: ACETAMINOPHEN\CHLORPHENIRAMINE MALEATE
  23. FLORASTOR [Concomitant]
     Active Substance: SACCHAROMYCES CEREVISIAE
  24. DICYCLOMINE                        /00068601/ [Concomitant]
     Active Substance: DICYCLOMINE HYDROCHLORIDE
  25. NAPROXEN                           /00256202/ [Concomitant]
     Active Substance: NAPROXEN SODIUM
  26. CITALOPRAM [Concomitant]
     Active Substance: CITALOPRAM HYDROBROMIDE
  27. VITAMIN D                          /00107901/ [Concomitant]
     Active Substance: ERGOCALCIFEROL
  28. LYRICA [Concomitant]
     Active Substance: PREGABALIN
  29. ADDERALL [Concomitant]
     Active Substance: AMPHETAMINE ASPARTATE\AMPHETAMINE SULFATE\DEXTROAMPHETAMINE SACCHARATE\DEXTROAMPHETAMINE SULFATE
  30. IRON [Concomitant]
     Active Substance: IRON
  31. NAC                                /00082801/ [Concomitant]
  32. ALLEGRA [Concomitant]
     Active Substance: FEXOFENADINE HYDROCHLORIDE
  33. COENZYME Q10 [Concomitant]
     Active Substance: UBIDECARENONE
  34. REQUIP [Concomitant]
     Active Substance: ROPINIROLE HYDROCHLORIDE
  35. TESTOSTERONE. [Concomitant]
     Active Substance: TESTOSTERONE
  36. XYREM [Suspect]
     Active Substance: SODIUM OXYBATE
     Indication: NARCOLEPSY
     Dosage: 2.25 G, BID
     Route: 048
     Dates: start: 200510, end: 2005
  37. DIAZEPAM. [Concomitant]
     Active Substance: DIAZEPAM
  38. FISH OIL 1-A-DAY + VITAMIN D3 [Concomitant]
  39. GUAIFENESIN AC [Concomitant]
     Active Substance: CODEINE PHOSPHATE\GUAIFENESIN
  40. TUMS ULTRA [Concomitant]
     Active Substance: CALCIUM CARBONATE
  41. CHERATUSSIN AC [Concomitant]
     Active Substance: CODEINE PHOSPHATE\GUAIFENESIN

REACTIONS (5)
  - Chronic idiopathic pain syndrome [Not Recovered/Not Resolved]
  - Suicidal ideation [Recovered/Resolved]
  - Bronchitis [Not Recovered/Not Resolved]
  - Memory impairment [Not Recovered/Not Resolved]
  - Hypersensitivity [Not Recovered/Not Resolved]
